FAERS Safety Report 20926154 (Version 1)
Quarter: 2022Q2

REPORT INFORMATION
  Report Type: Spontaneous
  Country: US (occurrence: US)
  Receive Date: 20220607
  Receipt Date: 20220607
  Transmission Date: 20220721
  Serious: No
  Sender: FDA-Public Use
  Company Number: US-PERRIGO-21US008871

PATIENT
  Sex: Female

DRUGS (3)
  1. MINOXIDIL [Suspect]
     Active Substance: MINOXIDIL
     Indication: Accidental exposure to product
     Dosage: UNK
     Route: 061
     Dates: start: 2017, end: 2021
  2. MINOXIDIL [Suspect]
     Active Substance: MINOXIDIL
     Dosage: UNK
     Route: 061
     Dates: start: 202106
  3. MINOXIDIL [Suspect]
     Active Substance: MINOXIDIL
     Dosage: UNK
     Route: 047
     Dates: start: 202106, end: 202106

REACTIONS (3)
  - Accidental exposure to product [Recovered/Resolved]
  - Wrong technique in product usage process [Not Recovered/Not Resolved]
  - Off label use [Not Recovered/Not Resolved]

NARRATIVE: CASE EVENT DATE: 20170101
